FAERS Safety Report 8444372-X (Version None)
Quarter: 2012Q2

REPORT INFORMATION
  Report Type: 
  Country: None (occurrence: None)
  Receive Date: 20120618
  Receipt Date: 20120612
  Transmission Date: 20120825
  Serious: Yes (Other)
  Sender: FDA-Public Use
  Company Number: US-PFIZER INC-2011246224

PATIENT
  Sex: Female
  Weight: 77.098 kg

DRUGS (3)
  1. EFFEXOR XR [Suspect]
     Dosage: 150, UNK
  2. EFFEXOR [Suspect]
     Indication: DEPRESSION
     Dosage: 100MG, DAILY
  3. EFFEXOR [Suspect]
     Dosage: 150 MG, DAILY
     Dates: end: 20120501

REACTIONS (8)
  - MALAISE [None]
  - NIGHT SWEATS [None]
  - IMPAIRED DRIVING ABILITY [None]
  - FEELING ABNORMAL [None]
  - GAIT DISTURBANCE [None]
  - DIZZINESS [None]
  - ACTIVITIES OF DAILY LIVING IMPAIRED [None]
  - HYPOKINESIA [None]
